FAERS Safety Report 12199136 (Version 2)
Quarter: 2017Q1

REPORT INFORMATION
  Report Type: Report from Study
  Country: AE (occurrence: AE)
  Receive Date: 20160322
  Receipt Date: 20170208
  Transmission Date: 20170428
  Serious: Yes (Other)
  Sender: FDA-Public Use
  Company Number: AE-ROCHE-1729511

PATIENT
  Age: 40 Year
  Sex: Female

DRUGS (2)
  1. PEG-INTERFERON ALFA 2A [Suspect]
     Active Substance: PEGINTERFERON ALFA-2A
     Indication: CHRONIC HEPATITIS C
     Route: 058
     Dates: start: 20130418, end: 20140313
  2. RIBAVIRIN. [Suspect]
     Active Substance: RIBAVIRIN
     Indication: CHRONIC HEPATITIS C
     Route: 048
     Dates: start: 20130418, end: 20140313

REACTIONS (5)
  - Rhinitis allergic [Recovered/Resolved]
  - Pancytopenia [Recovered/Resolved]
  - Anaemia [Not Recovered/Not Resolved]
  - Headache [Recovered/Resolved with Sequelae]
  - Epistaxis [Recovered/Resolved]

NARRATIVE: CASE EVENT DATE: 20130506
